FAERS Safety Report 8832348 (Version 1)
Quarter: 2012Q4

REPORT INFORMATION
  Report Type: 
  Country: US (occurrence: US)
  Receive Date: 20121009
  Receipt Date: 20121009
  Transmission Date: 20130627
  Serious: No
  Sender: FDA-Public Use
  Company Number: US-ASTRAZENECA-2012SE75053

PATIENT
  Age: 77 Year
  Sex: Female
  Weight: 65.8 kg

DRUGS (8)
  1. CRESTOR [Suspect]
     Indication: BLOOD CHOLESTEROL INCREASED
     Route: 048
     Dates: start: 20120615, end: 20120629
  2. SIMVASTATIN [Concomitant]
     Indication: BLOOD CHOLESTEROL INCREASED
  3. LEVOXYL [Concomitant]
     Indication: THYROID DISORDER
  4. AMLODIPINE [Concomitant]
     Indication: HYPERTENSION
  5. AMARYL [Concomitant]
     Indication: DIABETES MELLITUS
  6. COZAAR [Concomitant]
     Indication: HYPERTENSION
  7. MULTIVITAMINS [Concomitant]
  8. B 12 SUPPLEMENT [Concomitant]

REACTIONS (5)
  - Pain [Recovered/Resolved]
  - Dysphagia [Unknown]
  - Pharyngeal oedema [Recovered/Resolved]
  - Blood glucose increased [Recovered/Resolved]
  - Dizziness [Recovered/Resolved]
